FAERS Safety Report 7701261-3 (Version None)
Quarter: 2011Q3

REPORT INFORMATION
  Report Type: 
  Country: None (occurrence: None)
  Receive Date: 20110822
  Receipt Date: 20110812
  Transmission Date: 20111222
  Serious: Yes (Hospitalization)
  Sender: FDA-Public Use
  Company Number: FR-GLAXOSMITHKLINE-B0733560B

PATIENT
  Sex: Female
  Weight: 73 kg

DRUGS (9)
  1. DOXYCYCLINE [Concomitant]
     Indication: PROPHYLAXIS
     Route: 048
     Dates: start: 20110808
  2. VEINAMITOL [Concomitant]
     Indication: HAEMORRHOIDS
     Route: 048
     Dates: start: 20110808
  3. ULTRALEVURE [Concomitant]
     Indication: PROPHYLAXIS AGAINST DIARRHOEA
     Route: 048
     Dates: start: 20110808
  4. LAPATINIB [Suspect]
     Indication: BREAST CANCER METASTATIC
     Dosage: 1250MG PER DAY
     Route: 048
     Dates: start: 20110531
  5. NUX VOMICA [Concomitant]
     Indication: NAUSEA
     Route: 048
     Dates: start: 20110808
  6. PANTOPRAZOLE SODIUM [Concomitant]
     Indication: PROPHYLAXIS
     Route: 048
     Dates: start: 20110808
  7. DOCETAXEL [Suspect]
     Indication: BREAST CANCER METASTATIC
     Dosage: 132MG CYCLIC
     Route: 042
     Dates: start: 20110531
  8. ACETAMINOPHEN [Concomitant]
     Route: 048
  9. KETOPROFEN [Concomitant]
     Indication: HAEMORRHOIDS
     Route: 048
     Dates: start: 20110808

REACTIONS (1)
  - FEBRILE NEUTROPENIA [None]
